FAERS Safety Report 17871511 (Version 1)
Quarter: 2020Q2

REPORT INFORMATION
  Report Type: Spontaneous
  Country: US (occurrence: US)
  Receive Date: 20200608
  Receipt Date: 20200608
  Transmission Date: 20200714
  Serious: Yes (Hospitalization)
  Sender: FDA-Public Use
  Company Number: US-TEVA-2020-US-1245362

PATIENT
  Age: 37 Year
  Sex: Female

DRUGS (1)
  1. ETHINYLESTRADIOL/NORGESTREL [Suspect]
     Active Substance: ETHINYL ESTRADIOL\NORGESTREL
     Indication: ORAL CONTRACEPTION
     Dosage: 40MICROG/0.3MG TABLET DAILY FOR 14 YEARS
     Route: 048

REACTIONS (1)
  - Venoocclusive liver disease [Recovering/Resolving]
